FAERS Safety Report 4285148-7 (Version None)
Quarter: 2004Q1

REPORT INFORMATION
  Report Type: 
  Country: None (occurrence: None)
  Receive Date: 20040202
  Receipt Date: 20040116
  Transmission Date: 20041129
  Serious: Yes (Death)
  Sender: FDA-Public Use
  Company Number: US012646

PATIENT
  Age: 12 Year
  Sex: Male

DRUGS (2)
  1. FENTANYL [Suspect]
     Indication: HEADACHE
  2. MORPHINE [Suspect]
     Indication: HEADACHE

REACTIONS (2)
  - DRUG INTERACTION [None]
  - DRUG TOXICITY [None]
